FAERS Safety Report 20458072 (Version 3)
Quarter: 2022Q2

REPORT INFORMATION
  Report Type: Report from Study
  Country: US (occurrence: US)
  Receive Date: 20220211
  Receipt Date: 20220519
  Transmission Date: 20220721
  Serious: No
  Sender: FDA-Public Use
  Company Number: US-ACADIA PHARMACEUTICALS INC.-ACA-2022-PIM-000218

PATIENT
  Sex: Male

DRUGS (5)
  1. NUPLAZID [Suspect]
     Active Substance: PIMAVANSERIN TARTRATE
     Indication: Parkinson^s disease psychosis
     Dosage: 34 MILLIGRAM, QD
     Route: 048
     Dates: start: 20220107, end: 20220430
  2. NUPLAZID [Suspect]
     Active Substance: PIMAVANSERIN TARTRATE
     Indication: Hallucination
  3. NUPLAZID [Suspect]
     Active Substance: PIMAVANSERIN TARTRATE
     Indication: Delusion
  4. AMIODARONE [Suspect]
     Active Substance: AMIODARONE
     Indication: Peripheral swelling
  5. LASIX [Concomitant]
     Active Substance: FUROSEMIDE
     Indication: Peripheral swelling

REACTIONS (8)
  - Ventricular extrasystoles [Unknown]
  - Ventricular extrasystoles [Unknown]
  - Gait inability [Unknown]
  - Sleep disorder [Unknown]
  - Fatigue [Unknown]
  - Drug interaction [Unknown]
  - Hallucination [Not Recovered/Not Resolved]
  - Oedema peripheral [Recovered/Resolved]
